FAERS Safety Report 19764363 (Version 1)
Quarter: 2021Q3

REPORT INFORMATION
  Report Type: Spontaneous
  Country: FR (occurrence: FR)
  Receive Date: 20210830
  Receipt Date: 20210830
  Transmission Date: 20211014
  Serious: Yes (Other)
  Sender: FDA-Public Use
  Company Number: FR-MYLANLABS-2021M1056238

PATIENT
  Age: 59 Year
  Sex: Male

DRUGS (8)
  1. BACTRIM [Suspect]
     Active Substance: SULFAMETHOXAZOLE\TRIMETHOPRIM
     Indication: INFECTION PROPHYLAXIS
     Dosage: NON PR?CIS?
     Route: 048
     Dates: start: 202012, end: 202012
  2. ORACILLINE                         /00001801/ [Suspect]
     Active Substance: PENICILLIN V
     Indication: INFECTION PROPHYLAXIS
     Dosage: NON PR?CIS?
     Route: 048
     Dates: start: 202012, end: 202012
  3. LOVENOX [Suspect]
     Active Substance: ENOXAPARIN SODIUM
     Indication: INFECTION PROPHYLAXIS
     Dosage: 4000 INTERNATIONAL UNIT, QD
     Route: 059
     Dates: start: 202012
  4. VELCADE [Suspect]
     Active Substance: BORTEZOMIB
     Indication: CHEMOTHERAPY
     Dosage: 2 SEMAINES SUR 3
     Route: 059
     Dates: start: 202012
  5. ZELITREX [Suspect]
     Active Substance: VALACYCLOVIR HYDROCHLORIDE
     Indication: INFECTION PROPHYLAXIS
     Dosage: NON PR?CIS?
     Route: 048
     Dates: start: 202012, end: 202012
  6. LEDERFOLINE [Suspect]
     Active Substance: LEUCOVORIN CALCIUM
     Indication: INFECTION PROPHYLAXIS
     Dosage: NON PR?CIS?
     Route: 048
     Dates: start: 202012, end: 202012
  7. DEXAMETHASONE. [Suspect]
     Active Substance: DEXAMETHASONE
     Indication: CHEMOTHERAPY
     Dosage: J1, J2, J4; J5; J8; J9; J11; J12
     Route: 059
     Dates: start: 20201201, end: 20201213
  8. REVLIMID [Suspect]
     Active Substance: LENALIDOMIDE
     Indication: CHEMOTHERAPY
     Dosage: 1 GRAM, QD
     Route: 059
     Dates: start: 20201201, end: 20201215

REACTIONS (3)
  - Asthenia [Recovered/Resolved]
  - Decreased appetite [Recovered/Resolved]
  - Acute generalised exanthematous pustulosis [Recovered/Resolved]

NARRATIVE: CASE EVENT DATE: 20201208
